FAERS Safety Report 10580078 (Version 1)
Quarter: 2014Q4

REPORT INFORMATION
  Report Type: Spontaneous
  Country: BR (occurrence: BR)
  Receive Date: 20141112
  Receipt Date: 20141112
  Transmission Date: 20150529
  Serious: Yes (Other)
  Sender: FDA-Public Use
  Company Number: BR-PFIZER INC-2014308005

PATIENT
  Age: 70 Year
  Sex: Female
  Weight: 70 kg

DRUGS (6)
  1. COMBIGAN [Concomitant]
     Active Substance: BRIMONIDINE TARTRATE\TIMOLOL MALEATE
     Indication: INTRAOCULAR PRESSURE INCREASED
     Dosage: 1 DROP IN LEFT EYE, UNK
     Dates: start: 2006
  2. OSTEOBLOCK [Concomitant]
     Indication: OSTEOPENIA
     Dosage: 1 TABLET, WEEKLY
     Dates: start: 2010
  3. XALATAN [Suspect]
     Active Substance: LATANOPROST
     Indication: GLAUCOMA
     Dosage: 1 DROP IN BOTH EYES, UNK
     Route: 047
     Dates: start: 2006
  4. DIAMOX SEQUELS [Concomitant]
     Active Substance: ACETAZOLAMIDE
     Indication: INTRAOCULAR PRESSURE INCREASED
     Dosage: UNK
     Dates: start: 201101
  5. OSSOTRAT D [Concomitant]
     Indication: OSTEOPOROSIS
     Dosage: 1 TABLET, DAILY
     Dates: start: 2007
  6. OCUPRESS [Concomitant]
     Active Substance: CARTEOLOL HYDROCHLORIDE
     Indication: INTRAOCULAR PRESSURE INCREASED
     Dosage: 1 DROP IN RIGHT EYE, 3X/DAY
     Dates: start: 2006

REACTIONS (5)
  - Drug ineffective [Recovered/Resolved]
  - Eye disorder [Unknown]
  - Cataract [Unknown]
  - Glaucoma [Unknown]
  - Blindness unilateral [Unknown]

NARRATIVE: CASE EVENT DATE: 2010
